FAERS Safety Report 9312015 (Version 1)
Quarter: 2013Q2

REPORT INFORMATION
  Report Type: Report from Study
  Country: US (occurrence: US)
  Receive Date: 20130528
  Receipt Date: 20130528
  Transmission Date: 20140414
  Serious: Yes (Hospitalization)
  Sender: FDA-Public Use
  Company Number: US-ASTELLAS-2013US005499

PATIENT
  Age: 81 Year
  Sex: Female

DRUGS (1)
  1. ERLOTINIB TABLET [Suspect]
     Indication: NON-SMALL CELL LUNG CANCER
     Dosage: 1 DF, UID/QD
     Route: 048
     Dates: start: 20130422

REACTIONS (4)
  - Fall [Unknown]
  - Rib fracture [Unknown]
  - Upper limb fracture [Unknown]
  - Cerebral haemorrhage [Recovering/Resolving]
